FAERS Safety Report 6159474-0 (Version None)
Quarter: 2009Q2

REPORT INFORMATION
  Report Type: 
  Country: None (occurrence: None)
  Receive Date: 20090418
  Receipt Date: 20090402
  Transmission Date: 20091009
  Serious: Yes (Hospitalization)
  Sender: FDA-Public Use
  Company Number: TW-ROCHE-607550

PATIENT
  Sex: Female

DRUGS (7)
  1. PEG-INTERFERON ALFA 2A (RO 25-8310) [Suspect]
     Dosage: VARIABLE DOSE WEEKLY
     Route: 058
     Dates: start: 20080603, end: 20081014
  2. PEG-INTERFERON ALFA 2A (RO 25-8310) [Suspect]
     Route: 058
     Dates: start: 20081021
  3. RIBAVIRIN [Suspect]
     Dosage: VARIABLE DOSE DAILY
     Route: 048
     Dates: start: 20080603, end: 20080826
  4. RIBAVIRIN [Suspect]
     Route: 048
     Dates: start: 20080908
  5. ELTROMBOPAG [Suspect]
     Indication: THROMBOCYTOPENIA
     Route: 048
     Dates: start: 20080521, end: 20080602
  6. BLINDED ELTROMBOPAG [Suspect]
     Dosage: VARIABLE DOSES
     Route: 048
     Dates: start: 20080603, end: 20080907
  7. BLINDED ELTROMBOPAG [Suspect]
     Dosage: RANDOMIZED TO ELTROMBOPAG
     Route: 048
     Dates: start: 20080908

REACTIONS (2)
  - ASCITES [None]
  - PLEURAL EFFUSION [None]
